FAERS Safety Report 9412013 (Version 1)
Quarter: 2013Q3

REPORT INFORMATION
  Report Type: Spontaneous
  Country: IT (occurrence: IT)
  Receive Date: 20130722
  Receipt Date: 20130722
  Transmission Date: 20140515
  Serious: Yes (Hospitalization)
  Sender: FDA-Public Use
  Company Number: IT-SANOFI-AVENTIS-2013SA070443

PATIENT
  Age: 90 Year
  Sex: Female

DRUGS (6)
  1. LASIX [Suspect]
     Indication: OEDEMA PERIPHERAL
     Route: 048
     Dates: start: 20130601, end: 20130607
  2. LACIPIL [Concomitant]
     Route: 048
  3. SEQUACOR [Concomitant]
     Route: 048
  4. RICAP [Concomitant]
     Route: 048
  5. NITROCOR [Concomitant]
     Route: 062
  6. PLAUNAC [Concomitant]
     Route: 048

REACTIONS (5)
  - Fall [Unknown]
  - Skin injury [Unknown]
  - Ulna fracture [Unknown]
  - Head injury [Unknown]
  - Orthostatic hypotension [Unknown]
